FAERS Safety Report 4408908-8 (Version None)
Quarter: 2004Q3

REPORT INFORMATION
  Report Type: 
  Country: None (occurrence: None)
  Receive Date: 20040727
  Receipt Date: 20040719
  Transmission Date: 20050211
  Serious: Yes (Death)
  Sender: FDA-Public Use
  Company Number: DE-BRISTOL-MYERS SQUIBB COMPANY-12649166

PATIENT
  Age: 30 Year
  Sex: Male

DRUGS (1)
  1. METHOTREXATE [Suspect]
     Indication: B-CELL LYMPHOMA
     Route: 037

REACTIONS (3)
  - BRAIN HERNIATION [None]
  - BRAIN OEDEMA [None]
  - COMA [None]
